APPROVED DRUG PRODUCT: LAMIVUDINE
Active Ingredient: LAMIVUDINE
Strength: 150MG
Dosage Form/Route: TABLET;ORAL
Application: A091606 | Product #001 | TE Code: AB
Applicant: APOTEX INC
Approved: Dec 2, 2011 | RLD: No | RS: No | Type: RX